FAERS Safety Report 4424430-7 (Version None)
Quarter: 2004Q3

REPORT INFORMATION
  Report Type: 
  Country: None (occurrence: None)
  Receive Date: 20040719
  Receipt Date: 20031229
  Transmission Date: 20050211
  Serious: Yes (Hospitalization)
  Sender: FDA-Public Use
  Company Number: 189488

PATIENT
  Age: 31 Year
  Sex: Female
  Weight: 58.9676 kg

DRUGS (7)
  1. AVONEX [Suspect]
     Indication: MULTIPLE SCLEROSIS
     Dosage: 30 MCG QW IM
     Route: 030
     Dates: start: 20020201, end: 20030901
  2. AVONEX [Suspect]
     Indication: MULTIPLE SCLEROSIS
     Dosage: 30 MCG QW IM
     Route: 030
     Dates: start: 20030901
  3. NEURONTIN [Concomitant]
  4. METHADONE HCL [Concomitant]
  5. ZANAFLEX [Concomitant]
  6. PROVIGIL [Concomitant]
  7. DEPO-PROVERA [Concomitant]

REACTIONS (13)
  - CYSTITIS [None]
  - DEPRESSION [None]
  - FALL [None]
  - JOINT STIFFNESS [None]
  - KIDNEY INFECTION [None]
  - LIGAMENT INJURY [None]
  - MULTIPLE SCLEROSIS [None]
  - MULTIPLE SCLEROSIS RELAPSE [None]
  - MUSCLE TIGHTNESS [None]
  - OEDEMA PERIPHERAL [None]
  - REFLEX SYMPATHETIC DYSTROPHY [None]
  - SKIN DISCOLOURATION [None]
  - TENDON RUPTURE [None]
